FAERS Safety Report 8117982-7 (Version None)
Quarter: 2012Q1

REPORT INFORMATION
  Report Type: 
  Country: None (occurrence: None)
  Receive Date: 20120207
  Receipt Date: 20120123
  Transmission Date: 20120608
  Serious: Yes (Death, Other)
  Sender: FDA-Public Use
  Company Number: DE-CELGENEUS-062-50794-11101724

PATIENT
  Age: 78 Year
  Sex: Female

DRUGS (10)
  1. VIDAZA [Suspect]
     Route: 058
     Dates: start: 20081201, end: 20090301
  2. PREDNISOLONE [Concomitant]
     Route: 065
  3. AMPHOTERICIN B [Concomitant]
     Route: 065
  4. TOPIRAMATE [Concomitant]
     Route: 065
  5. VIDAZA [Suspect]
     Route: 058
     Dates: start: 20081101, end: 20081201
  6. TORSEMIDE [Concomitant]
     Route: 065
  7. METOPROLOL SUCCINATE [Concomitant]
     Route: 065
  8. PANTOPRAZOLE [Concomitant]
     Route: 065
  9. LEVOTHYROXINE SODIUM [Concomitant]
     Route: 065
  10. ALLOPURINOL [Concomitant]
     Route: 065

REACTIONS (2)
  - MYELODYSPLASTIC SYNDROME TRANSFORMATION [None]
  - ACUTE MYELOID LEUKAEMIA [None]
